FAERS Safety Report 4768144-2 (Version None)
Quarter: 2005Q3

REPORT INFORMATION
  Report Type: 
  Country: None (occurrence: None)
  Receive Date: 20050912
  Receipt Date: 20050912
  Transmission Date: 20060218
  Serious: Yes (Hospitalization)
  Sender: FDA-Public Use
  Company Number: None

PATIENT
  Age: 21 Year
  Sex: Male
  Weight: 56.6996 kg

DRUGS (2)
  1. PAXIL [Suspect]
     Indication: OFF LABEL USE
     Dosage: 10MG ONCE DAILY PO
     Route: 048
  2. PAXIL [Suspect]
     Indication: PANIC DISORDER
     Dosage: 10MG ONCE DAILY PO
     Route: 048

REACTIONS (3)
  - DEREALISATION [None]
  - PANIC ATTACK [None]
  - PARAESTHESIA [None]
